FAERS Safety Report 9146028 (Version 2)
Quarter: 2013Q2

REPORT INFORMATION
  Report Type: Spontaneous
  Country: US (occurrence: US)
  Receive Date: 20130307
  Receipt Date: 20130418
  Transmission Date: 20140414
  Serious: Yes (Other)
  Sender: FDA-Public Use
  Company Number: US-BAYER-2013-028620

PATIENT
  Age: 32 Year
  Sex: Female
  Weight: 111 kg

DRUGS (1)
  1. MIRENA [Suspect]
     Indication: CONTRACEPTION
     Dosage: UNK
     Dates: start: 2009

REACTIONS (8)
  - Genital haemorrhage [Not Recovered/Not Resolved]
  - Pelvic pain [None]
  - Muscle spasms [Not Recovered/Not Resolved]
  - Pelvic inflammatory disease [None]
  - Ovarian enlargement [None]
  - Adenomyosis [None]
  - Abdominal pain upper [None]
  - Weight increased [None]
